FAERS Safety Report 5631650-2 (Version None)
Quarter: 2008Q1

REPORT INFORMATION
  Report Type: 
  Country: None (occurrence: None)
  Receive Date: 20080220
  Receipt Date: 20080215
  Transmission Date: 20080703
  Serious: Yes (Other)
  Sender: FDA-Public Use
  Company Number: GB-BAYER-GB-2007-035677

PATIENT
  Age: 51 Year
  Sex: Female
  Weight: 80 kg

DRUGS (5)
  1. MIRENA [Suspect]
     Indication: MENORRHAGIA
     Route: 015
     Dates: start: 20061102
  2. ASPIRIN [Concomitant]
     Route: 048
     Dates: start: 19921105
  3. SIMVASTATIN [Concomitant]
     Indication: HYPERCHOLESTEROLAEMIA
     Route: 048
     Dates: start: 20040922
  4. AMLODIPINE [Concomitant]
     Indication: HYPERTENSION
     Route: 048
     Dates: start: 20050218
  5. THYROXINE ^APS^ [Concomitant]
     Indication: HYPOTHYROIDISM
     Route: 048
     Dates: start: 19981208

REACTIONS (1)
  - RETINAL VEIN OCCLUSION [None]
